FAERS Safety Report 8122142-X (Version None)
Quarter: 2012Q1

REPORT INFORMATION
  Report Type: 
  Country: None (occurrence: None)
  Receive Date: 20120208
  Receipt Date: 20120130
  Transmission Date: 20120608
  Serious: Yes (Hospitalization)
  Sender: FDA-Public Use
  Company Number: US-BAYER-2011-056549

PATIENT
  Sex: Female
  Weight: 77.551 kg

DRUGS (13)
  1. FEXOFENADINE [Concomitant]
     Indication: MULTIPLE ALLERGIES
     Dosage: 180 MG, QD
     Route: 048
     Dates: start: 20090521, end: 20091208
  2. METOPROLOL SUCCINATE [Concomitant]
     Indication: SUPRAVENTRICULAR TACHYCARDIA
     Dosage: UNK
     Dates: start: 20070101
  3. DIAZEPAM [Concomitant]
     Indication: TEMPOROMANDIBULAR JOINT SYNDROME
  4. DROSPIRENONE AND ETHINYL ESTRADIOL [Suspect]
     Indication: PREMENSTRUAL SYNDROME
  5. TOPROL-XL [Concomitant]
     Indication: SUPRAVENTRICULAR TACHYCARDIA
     Dosage: UNK
     Dates: start: 20010101
  6. DIAZEPAM [Concomitant]
     Indication: MUSCLE RELAXANT THERAPY
     Dosage: 10 MG, BID
     Dates: start: 20091117
  7. DROSPIRENONE AND ETHINYL ESTRADIOL [Suspect]
     Indication: CONTRACEPTION
     Dosage: UNK
     Dates: start: 20090501, end: 20100701
  8. TIZANIDINE HCL [Concomitant]
     Indication: MUSCLE RELAXANT THERAPY
     Dosage: 4 MG, PRN
     Route: 048
     Dates: start: 20091117
  9. NEXIUM [Concomitant]
     Dosage: 40 MG, QD
     Route: 048
     Dates: start: 20091117
  10. ALLEGRA-D 12 HOUR [Concomitant]
     Indication: MULTIPLE ALLERGIES
     Dosage: UNK
     Dates: start: 20010101
  11. DEXILANT [Concomitant]
     Indication: GASTROOESOPHAGEAL REFLUX DISEASE
     Dosage: UNK
  12. ELIDEL [Concomitant]
     Indication: ECZEMA
     Dosage: UNK
     Dates: start: 20010101
  13. TIZANIDINE HCL [Concomitant]
     Indication: MUSCLE SPASMS

REACTIONS (3)
  - CHOLELITHIASIS [None]
  - PAIN [None]
  - CHOLECYSTITIS [None]
